FAERS Safety Report 4466668-9 (Version None)
Quarter: 2004Q4

REPORT INFORMATION
  Report Type: 
  Country: None (occurrence: None)
  Receive Date: 20041006
  Receipt Date: 20040927
  Transmission Date: 20050328
  Serious: Yes (Hospitalization)
  Sender: FDA-Public Use
  Company Number: US-ROCHE-381675

PATIENT
  Sex: Male

DRUGS (3)
  1. ROCEPHIN [Suspect]
     Indication: DRUG USE FOR UNKNOWN INDICATION
     Route: 042
     Dates: start: 20040815, end: 20040917
  2. VANCOMYCIN [Concomitant]
     Route: 042
  3. AMPICILLIN [Concomitant]
     Route: 042

REACTIONS (4)
  - CHEST PAIN [None]
  - DYSPNOEA [None]
  - PRURITUS [None]
  - PRURITUS GENERALISED [None]
